FAERS Safety Report 17402443 (Version 1)
Quarter: 2020Q1

REPORT INFORMATION
  Report Type: Spontaneous
  Country: US (occurrence: US)
  Receive Date: 20200210
  Receipt Date: 20200210
  Transmission Date: 20200409
  Serious: Yes (Hospitalization)
  Sender: FDA-Public Use
  Company Number: None

PATIENT
  Age: 38 Year
  Sex: Female

DRUGS (10)
  1. BENZONATATE. [Concomitant]
     Active Substance: BENZONATATE
  2. HUMIRA [Concomitant]
     Active Substance: ADALIMUMAB
     Dosage: ?          OTHER FREQUENCY:EVERY 2 WEEKS;?
     Route: 058
  3. PANTOPRAZOLE [Concomitant]
     Active Substance: PANTOPRAZOLE
  4. OFLOXACIN. [Concomitant]
     Active Substance: OFLOXACIN
  5. LEVETIRACETA [Concomitant]
  6. PREDNISOLONE. [Concomitant]
     Active Substance: PREDNISOLONE
  7. OSELTAMIVIR [Concomitant]
     Active Substance: OSELTAMIVIR
  8. ONDANSETRON [Concomitant]
     Active Substance: ONDANSETRON
  9. NAPROXEN. [Concomitant]
     Active Substance: NAPROXEN
  10. VENLAFAXINE [Concomitant]
     Active Substance: VENLAFAXINE HYDROCHLORIDE

REACTIONS (6)
  - Insurance issue [None]
  - Crohn^s disease [None]
  - Diarrhoea [None]
  - Weight abnormal [None]
  - Abdominal pain [None]
  - Therapy cessation [None]

NARRATIVE: CASE EVENT DATE: 20200101
